FAERS Safety Report 9891495 (Version 3)
Quarter: 2014Q2

REPORT INFORMATION
  Report Type: Spontaneous
  Country: US (occurrence: US)
  Receive Date: 20140212
  Receipt Date: 20140429
  Transmission Date: 20141212
  Serious: Yes (Other)
  Sender: FDA-Public Use
  Company Number: US-TEVA-462294USA

PATIENT
  Sex: Female

DRUGS (1)
  1. AVIANE [Suspect]

REACTIONS (1)
  - Coeliac disease [Unknown]
